FAERS Safety Report 5694848-3 (Version None)
Quarter: 2008Q2

REPORT INFORMATION
  Report Type: 
  Country: None (occurrence: None)
  Receive Date: 20080404
  Receipt Date: 20080401
  Transmission Date: 20081010
  Serious: Yes (Other)
  Sender: FDA-Public Use
  Company Number: CA-ASTRAZENECA-2008UW04242

PATIENT

DRUGS (1)
  1. NOLVADEX [Suspect]
     Route: 048

REACTIONS (2)
  - DRY EYE [None]
  - RETINAL HAEMORRHAGE [None]
